FAERS Safety Report 4396700-2 (Version None)
Quarter: 2004Q3

REPORT INFORMATION
  Report Type: 
  Country: None (occurrence: None)
  Receive Date: 20040709
  Receipt Date: 20040625
  Transmission Date: 20050211
  Serious: Yes (Disabling)
  Sender: FDA-Public Use
  Company Number: 2004EU001308

PATIENT
  Sex: Male
  Weight: 60 kg

DRUGS (2)
  1. FK506 (TACROLIMUS) CAPSULE [Suspect]
     Indication: LIVER TRANSPLANT
     Dosage: 3.00 MG/D, ORAL
     Route: 048
     Dates: start: 19960101
  2. DE-URSIL (URSODEOXYCHOLIC ACID) [Concomitant]

REACTIONS (3)
  - OPTIC ATROPHY [None]
  - VISUAL ACUITY REDUCED [None]
  - XANTHOPSIA [None]
